FAERS Safety Report 23847968 (Version 1)
Quarter: 2024Q2

REPORT INFORMATION
  Report Type: Spontaneous
  Country: US (occurrence: None)
  Receive Date: 20240510
  Receipt Date: 20240510
  Transmission Date: 20240716
  Serious: Yes (Hospitalization)
  Sender: FDA-Public Use
  Company Number: None

PATIENT
  Age: 74 Year
  Sex: Male
  Weight: 79.8 kg

DRUGS (1)
  1. DOXYCYCLINE HYCLATE [Suspect]
     Active Substance: DOXYCYCLINE HYCLATE
     Indication: Hydrocele
     Dosage: FREQUENCY : TWICE A DAY;?
     Route: 048
     Dates: start: 20180727, end: 20200320

REACTIONS (6)
  - Oesophagitis [None]
  - Gastrointestinal haemorrhage [None]
  - Gastritis [None]
  - Duodenitis [None]
  - Presyncope [None]
  - Dyspnoea [None]

NARRATIVE: CASE EVENT DATE: 20200318
